FAERS Safety Report 7587691-1 (Version None)
Quarter: 2011Q3

REPORT INFORMATION
  Report Type: 
  Country: None (occurrence: None)
  Receive Date: 20110704
  Receipt Date: 20110628
  Transmission Date: 20111222
  Serious: Yes (Death, Disabling, Other)
  Sender: FDA-Public Use
  Company Number: PHHY2011JP12979

PATIENT
  Sex: Female
  Weight: 56 kg

DRUGS (9)
  1. DIOVAN HCT [Suspect]
     Indication: HYPERTENSION
     Dosage: 1 DF, UNK
     Route: 048
     Dates: start: 20110121, end: 20110210
  2. PHENOBARBITAL TAB [Concomitant]
     Indication: EPILEPSY
     Dosage: 90 MG, UNK
     Route: 048
     Dates: start: 20110131
  3. AMANTADINE HCL [Concomitant]
     Indication: CEREBRAL INFARCTION
     Dosage: 150 MG, UNK
     Route: 048
     Dates: start: 20101230
  4. NIFEDIPINE [Suspect]
     Indication: HYPERTENSION
     Dosage: 40 MG DAILY
     Route: 048
     Dates: start: 20110204, end: 20110208
  5. MINOCYCLINE HCL [Suspect]
     Indication: PNEUMONIA
     Dosage: 200 MG DAILY
     Route: 041
     Dates: start: 20110207, end: 20110207
  6. BISOPROLOL FUMARATE [Suspect]
     Indication: HYPERTENSION
     Dosage: 2.5 MG DAILY
     Route: 048
     Dates: start: 20110208
  7. LANSOPRAZOLE [Concomitant]
     Indication: GASTROOESOPHAGEAL REFLUX DISEASE
     Dosage: 15 MG, UNK
     Route: 048
     Dates: start: 20101230
  8. MUCOTRON [Suspect]
     Indication: PNEUMONIA
     Dosage: 750 MG DAILY
     Route: 048
     Dates: start: 20110201
  9. DIOVAN [Suspect]
     Indication: HYPERTENSION
     Dosage: 80 MG, DAILY
     Route: 048
     Dates: start: 20110113, end: 20110120

REACTIONS (12)
  - CEREBRAL INFARCTION [None]
  - BLOOD PRESSURE SYSTOLIC INCREASED [None]
  - PRURITUS [None]
  - INFLAMMATION [None]
  - RESPIRATORY FAILURE [None]
  - HAEMORRHAGIC INFARCTION [None]
  - PNEUMONIA ASPIRATION [None]
  - RASH [None]
  - LUNG INFILTRATION [None]
  - MUSCLE SPASMS [None]
  - ACTIVITIES OF DAILY LIVING IMPAIRED [None]
  - LYMPHOID TISSUE HYPERPLASIA [None]
